FAERS Safety Report 13268927 (Version 1)
Quarter: 2017Q1

REPORT INFORMATION
  Report Type: Report from Study
  Country: US (occurrence: US)
  Receive Date: 20170224
  Receipt Date: 20170224
  Transmission Date: 20170428
  Serious: No
  Sender: FDA-Public Use
  Company Number: PHEH2017US005357

PATIENT
  Sex: Female

DRUGS (3)
  1. GLEEVEC [Suspect]
     Active Substance: IMATINIB MESYLATE
     Indication: PRODUCT USED FOR UNKNOWN INDICATION
     Dosage: UNK
     Route: 065
  2. INTERFERON [Concomitant]
     Active Substance: INTERFERON
     Indication: PRODUCT USED FOR UNKNOWN INDICATION
     Dosage: UNK
     Route: 065
  3. GLEEVEC [Suspect]
     Active Substance: IMATINIB MESYLATE
     Dosage: QOD (EVERY OTHER DAY)
     Route: 065

REACTIONS (11)
  - Vaginal haemorrhage [Unknown]
  - Thirst [Unknown]
  - Feeling abnormal [Unknown]
  - Pain [Unknown]
  - Headache [Unknown]
  - Nasopharyngitis [Unknown]
  - Varicose veins vaginal [Unknown]
  - Bone pain [Unknown]
  - Nausea [Unknown]
  - Chromaturia [Unknown]
  - Dysuria [Unknown]
